FAERS Safety Report 15985797 (Version 1)
Quarter: 2019Q1

REPORT INFORMATION
  Report Type: Spontaneous
  Country: JP (occurrence: JP)
  Receive Date: 20190220
  Receipt Date: 20190220
  Transmission Date: 20190418
  Serious: Yes (Hospitalization)
  Sender: FDA-Public Use
  Company Number: JP-PFIZER INC-2012S1004681

PATIENT
  Age: 42 Year
  Sex: Male

DRUGS (1)
  1. CEFTRIAXONE SODIUM. [Suspect]
     Active Substance: CEFTRIAXONE SODIUM
     Indication: WEIL^S DISEASE
     Dosage: 2 G, DAILY

REACTIONS (2)
  - Jarisch-Herxheimer reaction [Recovered/Resolved]
  - Pulmonary alveolar haemorrhage [Recovered/Resolved]
